FAERS Safety Report 5676773-7 (Version None)
Quarter: 2008Q1

REPORT INFORMATION
  Report Type: 
  Country: None (occurrence: None)
  Receive Date: 20080318
  Receipt Date: 20080306
  Transmission Date: 20080703
  Serious: Yes (Death, Other)
  Sender: FDA-Public Use
  Company Number: 025060

PATIENT
  Age: 29 Year

DRUGS (4)
  1. MIRTAZAPINE [Suspect]
     Dosage: ORAL
     Route: 048
  2. DOXEPIN HCL [Suspect]
     Dosage: ORAL
     Route: 048
  3. ESCITALOPRAM OXALATE [Suspect]
     Dosage: ORAL
     Route: 048
  4. UNSPECIFIED DRUGS() [Suspect]

REACTIONS (4)
  - CARDIAC ARREST [None]
  - COMPLETED SUICIDE [None]
  - DRUG TOXICITY [None]
  - RESPIRATORY ARREST [None]
